FAERS Safety Report 22078408 (Version 3)
Quarter: 2025Q1

REPORT INFORMATION
  Report Type: Spontaneous
  Country: US (occurrence: US)
  Receive Date: 20230309
  Receipt Date: 20250303
  Transmission Date: 20250409
  Serious: No
  Sender: SANOFI AVENTIS
  Company Number: US-SA-SAC20230308000107

PATIENT
  Age: 14 Year
  Sex: Female

DRUGS (14)
  1. DUPIXENT [Suspect]
     Active Substance: DUPILUMAB
     Indication: Dermatitis atopic
     Dosage: 300 MG, QOW
     Route: 058
     Dates: start: 20220624
  2. ESCITALOPRAM [Concomitant]
     Active Substance: ESCITALOPRAM OXALATE
  3. FLUOCINONIDE [Concomitant]
     Active Substance: FLUOCINONIDE
  4. PREDNISONE [Concomitant]
     Active Substance: PREDNISONE
  5. TRIAMCINOLONE [Concomitant]
     Active Substance: TRIAMCINOLONE
  6. TRIAMCINOLONE [Concomitant]
     Active Substance: TRIAMCINOLONE
  7. PAXLOVID [Concomitant]
     Active Substance: NIRMATRELVIR\RITONAVIR
  8. A-HYDROCORT [Concomitant]
     Active Substance: HYDROCORTISONE SODIUM SUCCINATE
  9. ETHINYL ESTRADIOL\NORGESTIMATE [Concomitant]
     Active Substance: ETHINYL ESTRADIOL\NORGESTIMATE
     Route: 065
  10. RINVOQ [Concomitant]
     Active Substance: UPADACITINIB
  11. ESCITALOPRAM [Concomitant]
     Active Substance: ESCITALOPRAM OXALATE
  12. TRIAMCINOLONE [Concomitant]
     Active Substance: TRIAMCINOLONE
  13. ETHINYL ESTRADIOL\NORGESTIMATE [Concomitant]
     Active Substance: ETHINYL ESTRADIOL\NORGESTIMATE
  14. RINVOQ [Concomitant]
     Active Substance: UPADACITINIB

REACTIONS (6)
  - Discomfort [Not Recovered/Not Resolved]
  - Sleep disorder due to a general medical condition [Not Recovered/Not Resolved]
  - Pain [Unknown]
  - Oropharyngeal pain [Unknown]
  - Rash [Not Recovered/Not Resolved]
  - Drug ineffective [Unknown]
